FAERS Safety Report 8413525-9 (Version None)
Quarter: 2012Q2

REPORT INFORMATION
  Report Type: 
  Country: None (occurrence: None)
  Receive Date: 20120605
  Receipt Date: 20120530
  Transmission Date: 20120825
  Serious: Yes (Congenital Anomaly)
  Sender: FDA-Public Use
  Company Number: US-GLAXOSMITHKLINE-A0979884A

PATIENT
  Sex: Male

DRUGS (3)
  1. NIFEDIPINE [Concomitant]
  2. ALDOMET [Concomitant]
  3. PAXIL [Suspect]
     Indication: ANXIETY
     Dosage: 20MG AT NIGHT
     Route: 064

REACTIONS (3)
  - MACROSOMIA [None]
  - FOETAL EXPOSURE DURING PREGNANCY [None]
  - KAWASAKI'S DISEASE [None]
